FAERS Safety Report 15061435 (Version 1)
Quarter: 2018Q2

REPORT INFORMATION
  Report Type: Spontaneous
  Country: US (occurrence: US)
  Receive Date: 20180625
  Receipt Date: 20180625
  Transmission Date: 20180711
  Serious: No
  Sender: FDA-Public Use
  Company Number: US-ROCHE-1936774

PATIENT
  Sex: Female
  Weight: 59.02 kg

DRUGS (1)
  1. XELODA [Suspect]
     Active Substance: CAPECITABINE
     Indication: BREAST CANCER
     Dosage: SIX TABLETS DAILY ;ONGOING: YES
     Route: 048

REACTIONS (1)
  - Gait disturbance [Unknown]
